FAERS Safety Report 6128240-4 (Version None)
Quarter: 2009Q1

REPORT INFORMATION
  Report Type: 
  Country: None (occurrence: None)
  Receive Date: 20090319
  Receipt Date: 20090305
  Transmission Date: 20090719
  Serious: Yes (Death, Hospitalization)
  Sender: FDA-Public Use
  Company Number: 02100-JPN-06-0176

PATIENT
  Age: 82 Year
  Sex: Female

DRUGS (4)
  1. PLETAL [Suspect]
     Indication: CEREBRAL INFARCTION
     Dosage: 100 MG, BID ORAL
     Route: 048
     Dates: start: 20060123, end: 20060421
  2. ASPIRIN [Concomitant]
  3. CLINIDIPINE (CLINIDIPINE) [Concomitant]
  4. ACECLOFENAC (ACECLOFENAC) [Concomitant]

REACTIONS (3)
  - ACUTE MYOCARDIAL INFARCTION [None]
  - CARDIAC ARREST [None]
  - HEMIPARESIS [None]
